FAERS Safety Report 6235777-6 (Version None)
Quarter: 2009Q2

REPORT INFORMATION
  Report Type: 
  Country: None (occurrence: None)
  Receive Date: 20090617
  Receipt Date: 20090617
  Transmission Date: 20091009
  Serious: No
  Sender: FDA-Public Use
  Company Number: None

PATIENT
  Sex: Male
  Weight: 77.1115 kg

DRUGS (2)
  1. ZICAM NASAL GEL [Suspect]
     Indication: NASAL CONGESTION
     Dates: start: 20080112, end: 20080128
  2. ZICAM NASAL GEL [Suspect]
     Indication: NASOPHARYNGITIS
     Dates: start: 20080112, end: 20080128

REACTIONS (2)
  - HYPOSMIA [None]
  - PAROSMIA [None]
